FAERS Safety Report 9667406 (Version 1)
Quarter: 2013Q4

REPORT INFORMATION
  Report Type: Spontaneous
  Country: GB (occurrence: GB)
  Receive Date: 20131104
  Receipt Date: 20131104
  Transmission Date: 20140711
  Serious: Yes (Other)
  Sender: FDA-Public Use
  Company Number: GB-BAYER-2013-131914

PATIENT
  Age: 30 Year
  Sex: Female
  Weight: 86 kg

DRUGS (3)
  1. BETAFERON [Suspect]
     Indication: MULTIPLE SCLEROSIS
     Dosage: 80000000 IU, QOD
     Route: 058
     Dates: start: 201111
  2. FOLIC ACID [Concomitant]
     Dosage: 400 ?G, UNK
     Route: 048
  3. VITAMIN B12 [Concomitant]
     Dosage: 1 DF, 1X / 3 MONTHS

REACTIONS (1)
  - Stillbirth [Unknown]
